FAERS Safety Report 9449010 (Version 1)
Quarter: 2013Q3

REPORT INFORMATION
  Report Type: Spontaneous
  Country: JP (occurrence: JP)
  Receive Date: 20130808
  Receipt Date: 20130808
  Transmission Date: 20140515
  Serious: Yes (Disabling)
  Sender: FDA-Public Use
  Company Number: JP-ABBOTT-13P-087-1130209-00

PATIENT
  Age: 36 Year
  Sex: Female

DRUGS (2)
  1. LEUPLIN [Suspect]
     Indication: MENORRHAGIA
     Route: 058
     Dates: start: 20110315, end: 20110510
  2. LEUPLIN [Suspect]
     Indication: UTERINE LEIOMYOMA

REACTIONS (1)
  - Carpal tunnel syndrome [Recovered/Resolved]
